FAERS Safety Report 19481153 (Version 1)
Quarter: 2021Q3

REPORT INFORMATION
  Report Type: Other
  Country: CA (occurrence: CA)
  Receive Date: 20210701
  Receipt Date: 20210701
  Transmission Date: 20211014
  Serious: Yes (Other)
  Sender: FDA-Public Use
  Company Number: CA-CELLTRION INC.-2021CA008625

PATIENT

DRUGS (13)
  1. RITUXIMAB (UNKNOWN) [Suspect]
     Active Substance: RITUXIMAB
     Indication: STIFF PERSON SYNDROME
     Dosage: 1000 MG
     Route: 042
  2. ESTRADIOL;ESTRIOL [Concomitant]
     Route: 065
  3. METHYLPREDNISOLONE. [Concomitant]
     Active Substance: METHYLPREDNISOLONE
     Indication: PREMEDICATION
     Dosage: 100 MG
     Route: 042
  4. ACETAMINOPHEN. [Concomitant]
     Active Substance: ACETAMINOPHEN
     Indication: PREMEDICATION
     Dosage: 650 MG
     Route: 048
  5. OXAZEPAM. [Concomitant]
     Active Substance: OXAZEPAM
  6. VITAMIN B COMPLEX [Concomitant]
     Active Substance: CYANOCOBALAMIN\DEXPANTHENOL\NIACINAMIDE\PYRIDOXINE HYDROCHLORIDE\RIBOFLAVIN 5^-PHOSPHATE SODIUM\THIAMINE HYDROCHLORIDE\VITAMIN B COMPLEX
  7. DIAZEPAM. [Concomitant]
     Active Substance: DIAZEPAM
  8. DIPHENHYDRAMINE. [Concomitant]
     Active Substance: DIPHENHYDRAMINE
     Indication: PREMEDICATION
     Dosage: 50 MG
     Route: 048
  9. MEXILETINE [Concomitant]
     Active Substance: MEXILETINE
  10. BACLOFEN. [Concomitant]
     Active Substance: BACLOFEN
  11. ESTRADOT [Concomitant]
     Active Substance: ESTRADIOL
  12. MAGNESIUM [Concomitant]
     Active Substance: MAGNESIUM
  13. OMEGA 3 [DOCOSAHEXAENOIC ACID;EICOSAPENTAENOIC ACID] [Concomitant]
     Active Substance: DOCONEXENT\ICOSAPENT

REACTIONS (2)
  - Off label use [Unknown]
  - Neutropenia [Unknown]
